FAERS Safety Report 4698501-4 (Version None)
Quarter: 2005Q2

REPORT INFORMATION
  Report Type: 
  Country: None (occurrence: None)
  Receive Date: 20050621
  Receipt Date: 20050608
  Transmission Date: 20051028
  Serious: Yes (Death, Hospitalization)
  Sender: FDA-Public Use
  Company Number: JP_050406289

PATIENT
  Age: 23 Year
  Sex: Female
  Weight: 24 kg

DRUGS (6)
  1. ZYPREXA [Suspect]
     Indication: ANOREXIA NERVOSA
     Dosage: 2.5 MG DAY
     Dates: start: 20050119, end: 20050215
  2. FERO-GRADUMET (FERROUS SULFATE) [Concomitant]
  3. MARZULENE S [Concomitant]
  4. GLYCYRON [Concomitant]
  5. TPN [Concomitant]
  6. RISPERDAL [Concomitant]

REACTIONS (7)
  - CARDIO-RESPIRATORY ARREST [None]
  - COMPLETED SUICIDE [None]
  - INTENTIONAL SELF-INJURY [None]
  - PLATELET COUNT DECREASED [None]
  - REFUSAL OF TREATMENT BY PATIENT [None]
  - THERMAL BURN [None]
  - WHITE BLOOD CELL COUNT DECREASED [None]
